FAERS Safety Report 10862229 (Version 1)
Quarter: 2015Q1

REPORT INFORMATION
  Report Type: Spontaneous
  Country: JP (occurrence: JP)
  Receive Date: 20150224
  Receipt Date: 20150224
  Transmission Date: 20150721
  Serious: Yes (Death, Other)
  Sender: FDA-Public Use
  Company Number: JP-SA-2014SA139227

PATIENT
  Age: 55 Year
  Sex: Male
  Weight: 60 kg

DRUGS (17)
  1. RABEPRAZOLE SODIUM. [Concomitant]
     Active Substance: RABEPRAZOLE SODIUM
     Dates: start: 20140705, end: 20141120
  2. ASPARA-CA [Concomitant]
     Active Substance: CALCIUM ASPARTATE
     Dates: start: 20140118, end: 20141120
  3. CALFINA [Concomitant]
     Active Substance: ALFACALCIDOL
     Dates: start: 20140118, end: 20141120
  4. ELPLAT [Suspect]
     Active Substance: OXALIPLATIN
     Indication: RECTAL CANCER
     Dosage: FORM: INFUSION SOLUTION INJECTION
     Route: 041
     Dates: start: 20140822, end: 20140822
  5. CALCICOL [Concomitant]
     Active Substance: CALCIUM GLUCONATE
     Dates: start: 20140124, end: 20140822
  6. PLATELETS [Concomitant]
     Active Substance: HUMAN PLATELET, ALLOGENIC
     Dates: start: 20140919, end: 20140924
  7. MS CONTIN [Concomitant]
     Active Substance: MORPHINE SULFATE
     Dates: start: 20140619, end: 20141023
  8. ELPLAT [Suspect]
     Active Substance: OXALIPLATIN
     Indication: RECTAL CANCER
     Dosage: FORM: INFUSION SOLUTION INJECTION
     Route: 041
     Dates: start: 20140912, end: 20140912
  9. RED BLOOD CELLS, CONCENTRATED [Concomitant]
     Active Substance: HUMAN RED BLOOD CELL
     Dates: start: 20140806, end: 20140807
  10. ELPLAT [Suspect]
     Active Substance: OXALIPLATIN
     Indication: RECTAL CANCER
     Dosage: FORM: INFUSION SOLUTION INJECTION
     Route: 041
     Dates: start: 20140801, end: 20140801
  11. TS-1 [Suspect]
     Active Substance: GIMERACIL\OTERACIL\TEGAFUR
     Indication: RECTAL CANCER
     Route: 048
     Dates: start: 20140822, end: 20140905
  12. TS-1 [Suspect]
     Active Substance: GIMERACIL\OTERACIL\TEGAFUR
     Indication: RECTAL CANCER
     Route: 048
     Dates: start: 20140912, end: 20140919
  13. GRANISETRON [Concomitant]
     Active Substance: GRANISETRON
     Dates: start: 20140801, end: 20140912
  14. MAGNESIUM SULFATE. [Concomitant]
     Active Substance: MAGNESIUM SULFATE
     Dates: start: 20140404, end: 20140912
  15. BROTIZOLAM [Concomitant]
     Active Substance: BROTIZOLAM
     Dates: start: 20131227, end: 20141120
  16. TS-1 [Suspect]
     Active Substance: GIMERACIL\OTERACIL\TEGAFUR
     Indication: RECTAL CANCER
     Route: 048
     Dates: start: 20140801, end: 20140815
  17. DEXART [Concomitant]
     Active Substance: DEXAMETHASONE SODIUM PHOSPHATE
     Dates: start: 20140801, end: 20140912

REACTIONS (6)
  - Vomiting [Unknown]
  - Dyslalia [Fatal]
  - Osteomyelitis [Fatal]
  - Thrombocytopenia [Recovering/Resolving]
  - Disseminated intravascular coagulation [Fatal]
  - Headache [Unknown]

NARRATIVE: CASE EVENT DATE: 20140920
